FAERS Safety Report 4640627-5 (Version None)
Quarter: 2005Q2

REPORT INFORMATION
  Report Type: 
  Country: None (occurrence: None)
  Receive Date: 20050419
  Receipt Date: 20050403
  Transmission Date: 20051028
  Serious: Yes (Death, Other)
  Sender: FDA-Public Use
  Company Number: 2004022047

PATIENT
  Age: 39 Year
  Sex: Female

DRUGS (2)
  1. GEODON [Suspect]
     Indication: SCHIZOPHRENIA
  2. CHLORPROMAZINE [Suspect]
     Indication: ILL-DEFINED DISORDER

REACTIONS (2)
  - ASPIRATION [None]
  - SUDDEN DEATH [None]
